FAERS Safety Report 17464602 (Version 1)
Quarter: 2020Q1

REPORT INFORMATION
  Report Type: Spontaneous
  Country: FR (occurrence: FR)
  Receive Date: 20200226
  Receipt Date: 20200226
  Transmission Date: 20200409
  Serious: Yes (Hospitalization)
  Sender: FDA-Public Use
  Company Number: FR-MYLANLABS-2020M1020723

PATIENT
  Age: 64 Year
  Sex: Female
  Weight: 80 kg

DRUGS (11)
  1. EXACYL [Suspect]
     Active Substance: TRANEXAMIC ACID
     Indication: PROPHYLAXIS
     Dosage: 2.5 GRAM, TOTAL (2500MG)
     Route: 042
     Dates: start: 20191129, end: 20191129
  2. DALACINE                           /00166003/ [Suspect]
     Active Substance: CLINDAMYCIN
     Indication: ANTIBIOTIC PROPHYLAXIS
     Dosage: 900 MILLIGRAM, TOTAL
     Route: 042
     Dates: start: 20191129, end: 20191129
  3. EUPANTOL [Suspect]
     Active Substance: PANTOPRAZOLE SODIUM
     Indication: PROPHYLAXIS
     Dosage: 40 MILLIGRAM, QD
     Route: 048
     Dates: start: 20191129, end: 20191203
  4. GLICLAZIDE [Concomitant]
     Active Substance: GLICLAZIDE
     Indication: PRODUCT USED FOR UNKNOWN INDICATION
     Dosage: 60 MILLIGRAM, QD
     Route: 048
  5. BUPIVACAINE. [Suspect]
     Active Substance: BUPIVACAINE
     Indication: ANAESTHESIA
     Dosage: UNK
     Route: 014
     Dates: start: 20191129, end: 20191129
  6. MIDAZOLAM HYDROCHLORIDE. [Suspect]
     Active Substance: MIDAZOLAM HYDROCHLORIDE
     Indication: ANAESTHESIA
     Dosage: 2 MILLIGRAM, TOTAL
     Route: 042
     Dates: start: 20191129, end: 20191129
  7. MORPHINE [Suspect]
     Active Substance: MORPHINE
     Indication: PROCEDURAL PAIN
     Dosage: UNK
     Route: 065
     Dates: start: 20191129, end: 20191129
  8. SEVOFLURANE. [Suspect]
     Active Substance: SEVOFLURANE
     Indication: ANAESTHESIA
     Dosage: UNK
     Route: 055
     Dates: start: 20191129, end: 20191129
  9. PROPOFOL. [Suspect]
     Active Substance: PROPOFOL
     Indication: ANAESTHESIA
     Dosage: 300 MILLIGRAM, TOTAL
     Route: 042
     Dates: start: 20191129, end: 20191129
  10. GALVUS [Suspect]
     Active Substance: VILDAGLIPTIN
     Indication: PRODUCT USED FOR UNKNOWN INDICATION
     Dosage: 50 MILLIGRAM, QD
     Route: 048
     Dates: start: 20191129, end: 20191202
  11. BIPROFENID [Suspect]
     Active Substance: KETOPROFEN
     Indication: SURGERY
     Dosage: 200 MILLIGRAM, QD
     Route: 048
     Dates: start: 20191129, end: 20191203

REACTIONS (1)
  - Acute generalised exanthematous pustulosis [Recovered/Resolved]

NARRATIVE: CASE EVENT DATE: 20191202
